FAERS Safety Report 19659967 (Version 1)
Quarter: 2021Q3

REPORT INFORMATION
  Report Type: Spontaneous
  Country: US (occurrence: US)
  Receive Date: 20210802
  Receipt Date: 20210802
  Transmission Date: 20211014
  Serious: No
  Sender: FDA-Public Use
  Company Number: None

PATIENT

DRUGS (2)
  1. ETOMIDATE. [Suspect]
     Active Substance: ETOMIDATE
     Dosage: ?          OTHER DOSE:20MG/10ML [2MG/ML];?
  2. PANTOPRAZOLE SODIUM. [Suspect]
     Active Substance: PANTOPRAZOLE SODIUM
     Dosage: ?          OTHER DOSE:40MG PER VIAL;?
     Route: 042

REACTIONS (2)
  - Product packaging confusion [None]
  - Intercepted product storage error [None]
